FAERS Safety Report 10025928 (Version 1)
Quarter: 2014Q1

REPORT INFORMATION
  Report Type: Spontaneous
  Country: CH (occurrence: CH)
  Receive Date: 20140320
  Receipt Date: 20140320
  Transmission Date: 20141002
  Serious: Yes (Other)
  Sender: FDA-Public Use
  Company Number: CHPA2014CH003979

PATIENT
  Sex: Female
  Weight: 2.1 kg

DRUGS (6)
  1. TAVEGYL [Suspect]
     Dosage: 2 MG, UNK
     Route: 064
     Dates: start: 20130523, end: 20130725
  2. CARBOPLATIN [Suspect]
     Indication: CERVIX CARCINOMA
     Dosage: UNK
     Route: 064
     Dates: start: 20130523, end: 20130725
  3. DEXAMETHASONE TABLETS USP [Suspect]
     Dosage: 20 MG, UNK
     Route: 064
     Dates: start: 20130522, end: 20130725
  4. TAXOL [Suspect]
     Indication: CERVIX CARCINOMA
     Dosage: UNK
     Route: 064
     Dates: start: 20130523, end: 20130725
  5. MOTILIUM//DOMPERIDONE [Suspect]
     Dosage: UNK, PRN
     Route: 064
  6. ZOFRAN [Suspect]
     Dosage: 8 MG, UNK
     Route: 064
     Dates: start: 20130523, end: 20130725

REACTIONS (2)
  - Premature baby [Unknown]
  - Exposure during pregnancy [Recovered/Resolved]
